FAERS Safety Report 24186011 (Version 2)
Quarter: 2024Q3

REPORT INFORMATION
  Report Type: Report from Study
  Country: US (occurrence: US)
  Receive Date: 20240807
  Receipt Date: 20240814
  Transmission Date: 20241017
  Serious: Yes (Other)
  Sender: ABBVIE
  Company Number: US-ABBVIE-5868623

PATIENT
  Sex: Female
  Weight: 108 kg

DRUGS (1)
  1. HUMIRA [Suspect]
     Active Substance: ADALIMUMAB
     Indication: Crohn^s disease
     Dosage: FORM STRENGTH: 40 MG
     Route: 058
     Dates: start: 20080212

REACTIONS (7)
  - Blindness [Unknown]
  - Malaise [Recovered/Resolved]
  - Hepatic enzyme increased [Unknown]
  - Upper respiratory tract infection [Not Recovered/Not Resolved]
  - Herpes zoster [Recovering/Resolving]
  - Cough [Not Recovered/Not Resolved]
  - Tongue disorder [Not Recovered/Not Resolved]
